FAERS Safety Report 8180224-0 (Version None)
Quarter: 2012Q1

REPORT INFORMATION
  Report Type: 
  Country: None (occurrence: None)
  Receive Date: 20120215
  Receipt Date: 20120207
  Transmission Date: 20120608
  Serious: Yes (Other)
  Sender: FDA-Public Use
  Company Number: 2011028352

PATIENT
  Age: 58 Year
  Sex: Female
  Weight: 82 kg

DRUGS (20)
  1. FOSAMAX [Concomitant]
  2. ZEMAIRA [Suspect]
     Indication: ALPHA-1 ANTI-TRYPSIN DEFICIENCY
     Dosage: 60;869;0.08; 3MG 1XWEEK, INTRAVENOUS
     Route: 042
     Dates: start: 20110401
  3. ZEMAIRA [Suspect]
     Indication: ALPHA-1 ANTI-TRYPSIN DEFICIENCY
     Dosage: 60;869;0.08; 3MG 1XWEEK, INTRAVENOUS
     Route: 042
     Dates: start: 20070201
  4. ZEMAIRA [Suspect]
     Indication: ALPHA-1 ANTI-TRYPSIN DEFICIENCY
     Dosage: 60;869;0.08; 3MG 1XWEEK, INTRAVENOUS
     Route: 042
     Dates: start: 20110601
  5. ZEMAIRA [Suspect]
     Indication: ALPHA-1 ANTI-TRYPSIN DEFICIENCY
     Dosage: 60;869;0.08; 3MG 1XWEEK, INTRAVENOUS
     Route: 042
     Dates: start: 20070101
  6. PREDNISONE TAB [Concomitant]
  7. ALBUTEROL [Concomitant]
  8. ZEMAIRA [Suspect]
  9. XANAX [Concomitant]
  10. PNEUMOVAX 23 [Concomitant]
  11. IBUPROFEN [Concomitant]
  12. MULTIVITAMIN (ACCOMIN MULTIVITAMIN) [Concomitant]
  13. AZMACORT INHALER (TRIAMCINOLONE ACETONIDE [Concomitant]
  14. LUTEIN (XANTOFYL) [Concomitant]
  15. ZEMAIRA [Suspect]
  16. OXYGEN (OXYGEN) [Concomitant]
  17. SPIRIVA [Concomitant]
  18. ACETAMINOPHEN [Concomitant]
  19. ASPIRIN [Concomitant]
  20. SODIUM CHLORIDE 0.9% [Concomitant]

REACTIONS (4)
  - RESPIRATORY TRACT INFECTION [None]
  - SKIN INFECTION [None]
  - CELLULITIS [None]
  - SINUSITIS [None]
